FAERS Safety Report 17294944 (Version 13)
Quarter: 2020Q3

REPORT INFORMATION
  Report Type: Spontaneous
  Country: US (occurrence: US)
  Receive Date: 20200121
  Receipt Date: 20200918
  Transmission Date: 20201102
  Serious: Yes (Other)
  Sender: FDA-Public Use
  Company Number: US-PFIZER INC-2020024873

PATIENT
  Age: 80 Year
  Sex: Female
  Weight: 71 kg

DRUGS (3)
  1. IBRANCE [Suspect]
     Active Substance: PALBOCICLIB
     Indication: BREAST CANCER METASTATIC
     Dosage: 125 MG, DAILY
     Route: 048
  2. IBRANCE [Suspect]
     Active Substance: PALBOCICLIB
     Dosage: 125 MG, CYCLIC (125MG ONCE A DAY FOR 21 DAYS AND OFF FOR 7)
     Dates: start: 20200626, end: 2020
  3. IBRANCE [Suspect]
     Active Substance: PALBOCICLIB
     Indication: BREAST CANCER METASTATIC
     Dosage: 100 MG, CYCLIC (100MG ROA NOT GIVEN EVERYDAY FOR 3WEEKS STOP + WITHOUT FOR 1WEEK AND START IT AGAIN)
     Dates: start: 20200627

REACTIONS (9)
  - Gastric ulcer [Recovered/Resolved]
  - Neoplasm progression [Unknown]
  - Gastrooesophageal reflux disease [Not Recovered/Not Resolved]
  - Grip strength decreased [Not Recovered/Not Resolved]
  - Arthritis [Unknown]
  - Nausea [Not Recovered/Not Resolved]
  - Eructation [Not Recovered/Not Resolved]
  - Gastrointestinal disorder [Not Recovered/Not Resolved]
  - Hypoacusis [Unknown]
